FAERS Safety Report 14940277 (Version 3)
Quarter: 2018Q3

REPORT INFORMATION
  Report Type: Report from Study
  Country: US (occurrence: US)
  Receive Date: 20180525
  Receipt Date: 20180814
  Transmission Date: 20181010
  Serious: Yes (Hospitalization, Other)
  Sender: FDA-Public Use
  Company Number: US-SA-2017SA108752

PATIENT
  Age: 30 Year
  Sex: Female

DRUGS (2)
  1. DILAUDID [Concomitant]
     Active Substance: HYDROMORPHONE HYDROCHLORIDE
     Dosage: UNK UNK, UNK
     Route: 048
  2. LEMTRADA [Suspect]
     Active Substance: ALEMTUZUMAB
     Indication: MULTIPLE SCLEROSIS
     Dosage: 12 MG,QD
     Route: 041
     Dates: start: 20170604, end: 20170608

REACTIONS (37)
  - Neuralgia [Not Recovered/Not Resolved]
  - Headache [Not Recovered/Not Resolved]
  - Fatigue [Unknown]
  - Pain [Not Recovered/Not Resolved]
  - Disturbance in attention [Unknown]
  - Menstrual disorder [Not Recovered/Not Resolved]
  - Condition aggravated [Not Recovered/Not Resolved]
  - Pain [Recovered/Resolved]
  - Abdominal pain [Recovered/Resolved]
  - Nerve block [Unknown]
  - Hypersensitivity [Unknown]
  - Speech disorder [Unknown]
  - Multiple sclerosis relapse [Unknown]
  - Gait disturbance [Unknown]
  - Nausea [Recovered/Resolved]
  - Hypersensitivity [Not Recovered/Not Resolved]
  - Unevaluable event [Unknown]
  - Teeth brittle [Unknown]
  - Muscle tightness [Unknown]
  - Alopecia [Not Recovered/Not Resolved]
  - Unresponsive to stimuli [Recovered/Resolved]
  - Stress [Unknown]
  - Hospitalisation [Unknown]
  - Contusion [Not Recovered/Not Resolved]
  - Renal disorder [Recovered/Resolved]
  - Rash pruritic [Recovered/Resolved]
  - Coma [Recovered/Resolved]
  - Hypoaesthesia [Unknown]
  - Dehydration [Unknown]
  - Lower urinary tract symptoms [Not Recovered/Not Resolved]
  - Somnolence [Unknown]
  - Immune system disorder [Recovered/Resolved]
  - Dental caries [Unknown]
  - Crying [Recovered/Resolved]
  - Hiccups [Unknown]
  - Movement disorder [Recovered/Resolved]
  - Loss of personal independence in daily activities [Recovered/Resolved]

NARRATIVE: CASE EVENT DATE: 2017
